FAERS Safety Report 17054840 (Version 3)
Quarter: 2020Q1

REPORT INFORMATION
  Report Type: Report from Study
  Country: FI (occurrence: FI)
  Receive Date: 20191120
  Receipt Date: 20200106
  Transmission Date: 20200409
  Serious: Yes (Hospitalization, Other)
  Sender: FDA-Public Use
  Company Number: FI-MYLANLABS-2019M1111313

PATIENT
  Age: 57 Year
  Sex: Male

DRUGS (12)
  1. ARIPIPRAZOLE. [Concomitant]
     Active Substance: ARIPIPRAZOLE
     Dosage: 10 MILLIGRAM, QD
     Dates: end: 2019
  2. TEMESTA                            /00273201/ [Concomitant]
     Active Substance: LORAZEPAM
     Dosage: 1 MILLIGRAM, 3 TIMES PER DAY
     Dates: start: 201908, end: 201908
  3. LEPONEX [Suspect]
     Active Substance: CLOZAPINE
     Dosage: UP-TITRATION TO DOSE 400 MG
     Dates: start: 201911
  4. TRILEPTAL [Concomitant]
     Active Substance: OXCARBAZEPINE
     Dosage: 1200 MILLIGRAM, QD
     Dates: start: 201908, end: 201908
  5. OLANZAPINE. [Concomitant]
     Active Substance: OLANZAPINE
     Dosage: 25-30 MG, QD
     Dates: start: 201911
  6. DIAPAM                             /00017001/ [Concomitant]
     Active Substance: DIAZEPAM
     Dosage: 10 MILLIGRAM, 3 TIMES PER DAY
     Dates: start: 201910
  7. LEPONEX [Suspect]
     Active Substance: CLOZAPINE
     Dosage: 400 MILLIGRAM, QD
     Dates: start: 201909, end: 201911
  8. LEPONEX [Suspect]
     Active Substance: CLOZAPINE
     Indication: SCHIZOPHRENIA
     Dosage: 400 MILLIGRAM, QD
     Dates: end: 201908
  9. ARIPIPRAZOLE. [Concomitant]
     Active Substance: ARIPIPRAZOLE
     Dosage: 30 MILLIGRAM, QD
     Dates: start: 201908, end: 201908
  10. LEPONEX [Suspect]
     Active Substance: CLOZAPINE
     Dosage: UNK
     Dates: end: 2019
  11. TRILEPTAL [Concomitant]
     Active Substance: OXCARBAZEPINE
     Dosage: 600 MG IN THE MORNINGS AND 1200 MG IN THE EVENINGS
     Dates: end: 201908
  12. OLANZAPINE. [Concomitant]
     Active Substance: OLANZAPINE
     Dosage: 10 MILLIGRAM, QD
     Dates: start: 201910, end: 201911

REACTIONS (12)
  - Tobacco abuse [Unknown]
  - Somatic symptom disorder [Unknown]
  - C-reactive protein decreased [Unknown]
  - Schizophrenia [Recovered/Resolved]
  - Polydipsia [Not Recovered/Not Resolved]
  - Loss of consciousness [Recovered/Resolved]
  - Aggression [Unknown]
  - Irritability [Unknown]
  - Neutropenia [Recovered/Resolved]
  - Anxiety [Unknown]
  - Neuroleptic malignant syndrome [Unknown]
  - Hyponatraemia [Recovering/Resolving]

NARRATIVE: CASE EVENT DATE: 2019
